FAERS Safety Report 5692337-3 (Version None)
Quarter: 2008Q2

REPORT INFORMATION
  Report Type: 
  Country: None (occurrence: None)
  Receive Date: 20080328
  Receipt Date: 20080102
  Transmission Date: 20081010
  Serious: Yes (Other)
  Sender: FDA-Public Use
  Company Number: US-WYE-H01979808

PATIENT
  Age: 57 Year
  Sex: Male
  Weight: 91.48 kg

DRUGS (8)
  1. TORISEL [Suspect]
     Indication: RENAL CELL CARCINOMA
     Dosage: SEE IMAGE
     Route: 042
     Dates: start: 20071210, end: 20071228
  2. TORISEL [Suspect]
     Indication: RENAL CELL CARCINOMA
     Dosage: SEE IMAGE
     Route: 042
     Dates: start: 20080115, end: 20080122
  3. TORISEL [Suspect]
     Indication: RENAL CELL CARCINOMA
     Dosage: SEE IMAGE
     Route: 042
     Dates: start: 20080129
  4. BENADRYL [Concomitant]
  5. FLEXERIL [Concomitant]
  6. ULTRAM [Concomitant]
  7. DOXYCYCLINE [Concomitant]
  8. ZOMETA [Concomitant]

REACTIONS (4)
  - CANDIDIASIS [None]
  - MUCOSAL INFLAMMATION [None]
  - MUSCULOSKELETAL CHEST PAIN [None]
  - ORAL HERPES [None]
